FAERS Safety Report 7588601-3 (Version None)
Quarter: 2011Q2

REPORT INFORMATION
  Report Type: 
  Country: None (occurrence: None)
  Receive Date: 20110603
  Receipt Date: 20110412
  Transmission Date: 20111010
  Serious: No
  Sender: FDA-Public Use
  Company Number: 2011SP016512

PATIENT
  Age: 54 Year
  Sex: Female

DRUGS (12)
  1. CONCERTA [Concomitant]
  2. PROZAC [Concomitant]
  3. HYDROCHLOROTHIAZIDE [Concomitant]
  4. REQUIP [Concomitant]
  5. VYZANSE [Concomitant]
  6. AMBIEN [Concomitant]
  7. TOPAMAX [Concomitant]
  8. SYMBALTA [Concomitant]
  9. SYNTHROID [Concomitant]
  10. SAPHRIS [Suspect]
     Indication: BIPOLAR DISORDER
     Dosage: 5 MG;QD;SL ; 5 MG ;QOD;SL
     Route: 060
     Dates: start: 20110301
  11. SAPHRIS [Suspect]
     Indication: BIPOLAR DISORDER
     Dosage: 5 MG;QD;SL ; 5 MG ;QOD;SL
     Route: 060
     Dates: start: 20101201, end: 20110301
  12. KOLONOPIN [Concomitant]

REACTIONS (5)
  - WEIGHT DECREASED [None]
  - UNDERDOSE [None]
  - INAPPROPRIATE SCHEDULE OF DRUG ADMINISTRATION [None]
  - WEIGHT INCREASED [None]
  - HYPOAESTHESIA FACIAL [None]
